FAERS Safety Report 10143547 (Version 2)
Quarter: 2014Q2

REPORT INFORMATION
  Report Type: Spontaneous
  Country: FR (occurrence: FR)
  Receive Date: 20140430
  Receipt Date: 20140506
  Transmission Date: 20141212
  Serious: Yes (Other)
  Sender: FDA-Public Use
  Company Number: FR-ALLERGAN-1408427US

PATIENT
  Sex: Male

DRUGS (1)
  1. GANFORT [Suspect]
     Indication: GLAUCOMA
     Dosage: 1 DROP IN EACH EYE EVERY EVENING
     Route: 047
     Dates: start: 201401

REACTIONS (1)
  - Corneal dystrophy [Not Recovered/Not Resolved]
